FAERS Safety Report 4840337-5 (Version None)
Quarter: 2005Q4

REPORT INFORMATION
  Report Type: 
  Country: None (occurrence: None)
  Receive Date: 20051025
  Receipt Date: 20041018
  Transmission Date: 20060501
  Serious: Yes (Hospitalization)
  Sender: FDA-Public Use
  Company Number: HQWYE915120OCT04

PATIENT
  Age: 12 Year
  Sex: Female
  Weight: 90 kg

DRUGS (12)
  1. RAPAMUNE [Suspect]
     Indication: PROPHYLAXIS AGAINST TRANSPLANT REJECTION
     Dosage: 1 MG 1X PER 1 DAY, ORAL
     Route: 048
     Dates: start: 20040701
  2. MAGNESIUM OXIDE (MAGNESIUM OXIDE) [Concomitant]
  3. ENALAPRIL MALEATE [Concomitant]
  4. PRAVACHOL [Concomitant]
  5. BUMEX [Concomitant]
  6. ATENOLOL [Concomitant]
  7. POTASSIUM CHLORIDE [Concomitant]
  8. ASPIRIN [Concomitant]
  9. NEURONTIN [Concomitant]
  10. ZANTAC [Concomitant]
  11. PROGRAF [Concomitant]
  12. PREDNISONE [Concomitant]

REACTIONS (1)
  - HEART TRANSPLANT REJECTION [None]
